FAERS Safety Report 5692749-8 (Version None)
Quarter: 2008Q2

REPORT INFORMATION
  Report Type: 
  Country: None (occurrence: None)
  Receive Date: 20080401
  Receipt Date: 20080325
  Transmission Date: 20081010
  Serious: Yes (Death)
  Sender: FDA-Public Use
  Company Number: 163-21880-08031689

PATIENT
  Age: 88 Year
  Sex: Female

DRUGS (6)
  1. REVLIMID [Suspect]
     Indication: MULTIPLE MYELOMA
     Dosage: 25 MG, 1 IN 1 D, ORAL
     Route: 048
     Dates: start: 20070515
  2. DILTIAZEM XR (DILTIAZEM) [Concomitant]
  3. POTASSIUM CHLORIDE [Concomitant]
  4. FERROUS SULFATE TAB [Concomitant]
  5. DECADRON [Concomitant]
  6. COMBIVENT [Concomitant]

REACTIONS (2)
  - MALIGNANT NEOPLASM PROGRESSION [None]
  - MULTIPLE MYELOMA [None]
